FAERS Safety Report 9133440 (Version 1)
Quarter: 2013Q1

REPORT INFORMATION
  Report Type: Spontaneous
  Country: US (occurrence: US)
  Receive Date: 20130128
  Receipt Date: 20130128
  Transmission Date: 20140127
  Serious: No
  Sender: FDA-Public Use
  Company Number: US-ASTRAZENECA-2012SE94752

PATIENT
  Sex: Female

DRUGS (2)
  1. NEXIUM [Suspect]
     Indication: GASTROOESOPHAGEAL REFLUX DISEASE
     Route: 048
  2. OTC ALLERGY PILL [Concomitant]
     Indication: MULTIPLE ALLERGIES

REACTIONS (4)
  - Dyspepsia [Unknown]
  - Gastritis [Unknown]
  - Abdominal pain upper [Unknown]
  - Drug dose omission [Unknown]
